FAERS Safety Report 6791203-X (Version None)
Quarter: 2010Q2

REPORT INFORMATION
  Report Type: 
  Country: None (occurrence: None)
  Receive Date: 20100624
  Receipt Date: 20090828
  Transmission Date: 20101027
  Serious: No
  Sender: FDA-Public Use
  Company Number: US-BAUSCH-2009BL004401

PATIENT
  Sex: Female

DRUGS (1)
  1. BRIMONIDINE TARTRATE [Suspect]
     Indication: GLAUCOMA
     Route: 047

REACTIONS (3)
  - EYE IRRITATION [None]
  - EYELID IRRITATION [None]
  - FOREIGN BODY SENSATION IN EYES [None]
